FAERS Safety Report 6235935 (Version 3)
Quarter: 2019Q3

REPORT INFORMATION
  Report Type: Spontaneous
  Country: ES (occurrence: ES)
  Receive Date: 20070129
  Receipt Date: 20190803
  Transmission Date: 20191005
  Serious: Yes (Hospitalization, Other)
  Sender: FDA-Public Use
  Company Number: GXKR2007ES00908

PATIENT
  Age: 37 Year
  Sex: Male

DRUGS (5)
  1. METHOTREXATE. [Suspect]
     Active Substance: METHOTREXATE
     Indication: ANKYLOSING SPONDYLITIS
     Dosage: 7.5 MG -10 MG/QW
     Route: 065
  2. ANTIINFLAMMATORY/ANTIRHEUMATIC NON-STEROIDS [Concomitant]
     Indication: ANKYLOSING SPONDYLITIS
     Route: 065
  3. INFLIXIMAB [Suspect]
     Active Substance: INFLIXIMAB
     Dosage: 5 MG/KG, 9 DOSES
     Route: 065
  4. INFLIXIMAB [Suspect]
     Active Substance: INFLIXIMAB
     Indication: ANKYLOSING SPONDYLITIS
     Dosage: 3 MG/KG, 21 DOSES
     Route: 065
  5. PREDNISONE. [Suspect]
     Active Substance: PREDNISONE
     Indication: ANKYLOSING SPONDYLITIS
     Dosage: 10MG -20 MG, QD
     Route: 065

REACTIONS (11)
  - Antibody test positive [Recovered/Resolved]
  - Ulcer [Recovered/Resolved]
  - Gastrointestinal haemorrhage [Recovered/Resolved]
  - Drug interaction [Recovered/Resolved]
  - Off label use [Unknown]
  - Product use issue [Unknown]
  - Nodule [Recovered/Resolved]
  - Viral test positive [Recovered/Resolved]
  - Anaemia [Recovered/Resolved]
  - Kaposi^s sarcoma [Recovered/Resolved]
  - Oropharyngeal plaque [Recovered/Resolved]
